FAERS Safety Report 16149987 (Version 1)
Quarter: 2019Q2

REPORT INFORMATION
  Report Type: Spontaneous
  Country: GB (occurrence: GB)
  Receive Date: 20190403
  Receipt Date: 20190403
  Transmission Date: 20190711
  Serious: Yes (Other)
  Sender: FDA-Public Use
  Company Number: GB-ABBVIE-19P-167-2729877-00

PATIENT
  Age: 34 Year
  Sex: Female
  Weight: 69.85 kg

DRUGS (1)
  1. LEUPRORELIN [Suspect]
     Active Substance: LEUPROLIDE ACETATE
     Indication: IN VITRO FERTILISATION
     Dosage: 3.75 MILLIGRAM, QD
     Route: 051
     Dates: start: 20171017, end: 20171017

REACTIONS (2)
  - Hypoglycaemia [Recovered/Resolved]
  - Shock [Recovered/Resolved]

NARRATIVE: CASE EVENT DATE: 20171017
